FAERS Safety Report 6905923-7 (Version None)
Quarter: 2010Q3

REPORT INFORMATION
  Report Type: 
  Country: None (occurrence: None)
  Receive Date: 20100804
  Receipt Date: 20100726
  Transmission Date: 20110219
  Serious: Yes (Other)
  Sender: FDA-Public Use
  Company Number: DE-ROCHE-718334

PATIENT
  Age: 66 Year
  Sex: Male

DRUGS (3)
  1. XELODA [Suspect]
     Indication: GASTRIC CANCER
     Dosage: THE 5TH CYCLE ACCORDING TO EOX PROTOCOL
     Route: 065
     Dates: end: 20100721
  2. EPIRUBICIN [Concomitant]
     Indication: GASTRIC CANCER
     Dosage: THE 5TH CYCLE ACCORDING TO EOX PROTOCOL
  3. OXALIPLATINE [Concomitant]
     Indication: GASTRIC CANCER
     Dosage: THE 5TH CYCLE ACCORDING TO EOX PROTOCOL

REACTIONS (1)
  - METASTASES TO MENINGES [None]
